FAERS Safety Report 23360559 (Version 1)
Quarter: 2024Q1

REPORT INFORMATION
  Report Type: Spontaneous
  Country: DE (occurrence: DE)
  Receive Date: 20240103
  Receipt Date: 20240103
  Transmission Date: 20240409
  Serious: Yes (Hospitalization, Congenital Anomaly)
  Sender: FDA-Public Use
  Company Number: DE-EMBRYOTOX-202300097

PATIENT
  Sex: Female
  Weight: 2.91 kg

DRUGS (4)
  1. ENTYVIO [Suspect]
     Active Substance: VEDOLIZUMAB
     Indication: Colitis ulcerative
     Dosage: 108 MILLIGRAM, Q2WEEKS
     Route: 064
  2. ACETAMINOPHEN [Concomitant]
     Active Substance: ACETAMINOPHEN
     Indication: Headache
     Dosage: UNK
     Route: 064
     Dates: start: 20210321, end: 20211205
  3. ATOSIBAN [Concomitant]
     Active Substance: ATOSIBAN
     Indication: Tocolysis
     Dosage: UNK
     Route: 064
  4. HEXOPRENALINE SULFATE [Concomitant]
     Active Substance: HEXOPRENALINE SULFATE
     Indication: Tocolysis
     Dosage: UNK
     Route: 064

REACTIONS (7)
  - Foetal exposure during pregnancy [Unknown]
  - Hydrocephalus [Unknown]
  - Septum pellucidum agenesis [Not Recovered/Not Resolved]
  - Talipes [Not Recovered/Not Resolved]
  - Cardiac murmur [Unknown]
  - Meningomyelocele [Recovering/Resolving]
  - Cerebral ventricle dilatation [Not Recovered/Not Resolved]
